FAERS Safety Report 11936540 (Version 4)
Quarter: 2017Q2

REPORT INFORMATION
  Report Type: Report from Study
  Country: US (occurrence: US)
  Receive Date: 20160121
  Receipt Date: 20170530
  Transmission Date: 20170829
  Serious: Yes (Hospitalization, Other)
  Sender: FDA-Public Use
  Company Number: US-ARIAD PHARMACEUTICALS, INC-2015US005761

PATIENT
  Sex: Female

DRUGS (5)
  1. ICLUSIG [Suspect]
     Active Substance: PONATINIB
     Indication: ACUTE LYMPHOCYTIC LEUKAEMIA
     Dosage: 45 MG, QD
     Route: 048
     Dates: start: 20141223
  2. VINCRISTINE [Suspect]
     Active Substance: VINCRISTINE
     Indication: ACUTE LYMPHOCYTIC LEUKAEMIA
     Dosage: UNK
     Route: 065
  3. ICLUSIG [Suspect]
     Active Substance: PONATINIB
     Dosage: 45 MG, QD
     Route: 048
  4. ICLUSIG [Suspect]
     Active Substance: PONATINIB
     Dosage: 45 MG, QD
     Route: 048
  5. PREDNISONE. [Concomitant]
     Active Substance: PREDNISONE
     Dosage: 80 MG, UNK
     Route: 065

REACTIONS (35)
  - Blast cell count increased [Unknown]
  - Productive cough [Unknown]
  - Muscular weakness [Unknown]
  - Arthralgia [Recovered/Resolved]
  - Transfusion [Unknown]
  - Dyspnoea [Unknown]
  - Substance-induced psychotic disorder [Recovered/Resolved]
  - Musculoskeletal pain [Recovered/Resolved]
  - Erythema [Recovered/Resolved]
  - Pruritus [Recovered/Resolved]
  - Cough [Unknown]
  - White blood cell count increased [Unknown]
  - Constipation [Recovered/Resolved]
  - Neuropathy peripheral [Unknown]
  - Pneumonia [Recovered/Resolved]
  - Blood glucose increased [Recovered/Resolved]
  - Hyperkeratosis [Recovered/Resolved]
  - Rhinorrhoea [Unknown]
  - Platelet count decreased [Unknown]
  - Fall [Unknown]
  - Weight increased [Recovered/Resolved]
  - Dry skin [Recovered/Resolved]
  - Pain in extremity [Unknown]
  - Wheezing [Unknown]
  - Blood pressure increased [Recovered/Resolved]
  - Cellulitis [Unknown]
  - Acute lymphocytic leukaemia recurrent [Unknown]
  - Paraesthesia [Unknown]
  - Disorientation [Recovered/Resolved]
  - Irritability [Recovered/Resolved]
  - Fatigue [Not Recovered/Not Resolved]
  - Rash [Recovered/Resolved]
  - Pyrexia [Unknown]
  - Nausea [Unknown]
  - Oedema [Unknown]
